FAERS Safety Report 12944321 (Version 1)
Quarter: 2016Q4

REPORT INFORMATION
  Report Type: Spontaneous
  Country: DE (occurrence: DE)
  Receive Date: 20161115
  Receipt Date: 20161115
  Transmission Date: 20170207
  Serious: Yes (Hospitalization)
  Sender: FDA-Public Use
  Company Number: PHHY2016DE155381

PATIENT
  Sex: Female

DRUGS (1)
  1. EXJADE [Suspect]
     Active Substance: DEFERASIROX
     Indication: MYELODYSPLASTIC SYNDROME
     Dosage: 3 DF, QD
     Route: 065
     Dates: start: 2006, end: 201610

REACTIONS (8)
  - Abdominal discomfort [Unknown]
  - Bacterial infection [Not Recovered/Not Resolved]
  - Eating disorder [Unknown]
  - Cough [Unknown]
  - Serum ferritin increased [Unknown]
  - Nausea [Unknown]
  - Spinal fracture [Unknown]
  - Heart rate increased [Unknown]

NARRATIVE: CASE EVENT DATE: 2014
